FAERS Safety Report 4901935-3 (Version None)
Quarter: 2006Q1

REPORT INFORMATION
  Report Type: 
  Country: None (occurrence: None)
  Receive Date: 20060206
  Receipt Date: 20041118
  Transmission Date: 20060701
  Serious: Yes (Other)
  Sender: FDA-Public Use
  Company Number: 2004GB02778

PATIENT
  Age: 36 Year
  Sex: Female

DRUGS (10)
  1. ZOLADEX [Suspect]
     Indication: ARTIFICIAL MENOPAUSE
     Route: 058
     Dates: end: 20040901
  2. HUMAN INSULIN [Concomitant]
  3. METFORMIN [Concomitant]
  4. ATORVASTATIN CALCIUM [Concomitant]
  5. PLAVIX [Concomitant]
  6. AMLODIPINE [Concomitant]
  7. FLUOXETINE [Concomitant]
  8. BENDROFLUAZIDE [Concomitant]
  9. RAMIPRIL [Concomitant]
  10. ARIMIDEX [Concomitant]
     Indication: BREAST CANCER
     Route: 048

REACTIONS (4)
  - BLOOD PRESSURE INCREASED [None]
  - CEREBRAL INFARCTION [None]
  - CEREBROVASCULAR ACCIDENT [None]
  - HEMIPARESIS [None]
